FAERS Safety Report 12203125 (Version 1)
Quarter: 2016Q1

REPORT INFORMATION
  Report Type: Spontaneous
  Country: None (occurrence: None)
  Receive Date: 20160321
  Receipt Date: 20160321
  Transmission Date: 20160526
  Serious: No
  Sender: FDA-Public Use
  Company Number: None

PATIENT
  Age: 69 Year
  Sex: Female

DRUGS (1)
  1. KETOCONAZOLE SHAMPOO 2% PATRIOT PHARMACEUTICALS [Suspect]
     Active Substance: KETOCONAZOLE
     Indication: RASH
     Dosage: USE AS SHAMPOO  3 TIMES A WEEK TOPICAL
     Route: 061
     Dates: end: 20160317

REACTIONS (2)
  - Dizziness [None]
  - Acne [None]
